FAERS Safety Report 23588824 (Version 1)
Quarter: 2024Q1

REPORT INFORMATION
  Report Type: Spontaneous
  Country: NL (occurrence: NL)
  Receive Date: 20240303
  Receipt Date: 20240303
  Transmission Date: 20240410
  Serious: Yes (Life-Threatening)
  Sender: FDA-Public Use
  Company Number: NL-LRB-00949715

PATIENT
  Age: 40 Year
  Sex: Female
  Weight: 54 kg

DRUGS (1)
  1. TRAMADOL [Suspect]
     Active Substance: TRAMADOL\TRAMADOL HYDROCHLORIDE
     Indication: Analgesic therapy
     Dosage: 50 MILLIGRAM, ONCE A DAY
     Route: 065
     Dates: start: 20240215, end: 20240215

REACTIONS (7)
  - Tachycardia [Recovered/Resolved]
  - Joint stiffness [Recovered/Resolved]
  - Dry mouth [Recovered/Resolved]
  - Confusional state [Recovered/Resolved]
  - Bruxism [Recovered/Resolved]
  - Tremor [Recovered/Resolved]
  - Restlessness [Recovered/Resolved]
